FAERS Safety Report 25359676 (Version 1)
Quarter: 2025Q2

REPORT INFORMATION
  Report Type: Spontaneous
  Country: US (occurrence: US)
  Receive Date: 20250526
  Receipt Date: 20250526
  Transmission Date: 20250716
  Serious: Yes (Other)
  Sender: AMGEN
  Company Number: US-AMGEN-USASP2025098748

PATIENT
  Age: 43 Year
  Sex: Male

DRUGS (12)
  1. RITUXIMAB [Suspect]
     Active Substance: RITUXIMAB
     Indication: Diffuse large B-cell lymphoma stage IV
     Route: 065
  2. PREDNISONE [Suspect]
     Active Substance: PREDNISONE
     Indication: Diffuse large B-cell lymphoma stage IV
     Route: 065
  3. BICTEGRAVIR [Concomitant]
     Active Substance: BICTEGRAVIR
  4. EMTRICITABINE [Concomitant]
     Active Substance: EMTRICITABINE
  5. TENOFOVIR AMIBUFENAMIDE [Concomitant]
     Active Substance: TENOFOVIR AMIBUFENAMIDE
  6. CYCLOPHOSPHAMIDE [Concomitant]
     Active Substance: CYCLOPHOSPHAMIDE
  7. VINCRISTINE [Concomitant]
     Active Substance: VINCRISTINE
  8. DOXORUBICIN [Concomitant]
     Active Substance: DOXORUBICIN
  9. ETOPOSIDE [Concomitant]
     Active Substance: ETOPOSIDE
  10. AXICABTAGENE CILOLEUCEL [Concomitant]
     Active Substance: AXICABTAGENE CILOLEUCEL
  11. POLATUZUMAB VEDOTIN [Concomitant]
     Active Substance: POLATUZUMAB VEDOTIN
  12. METHOTREXATE [Concomitant]
     Active Substance: METHOTREXATE
     Route: 029

REACTIONS (3)
  - Diffuse large B-cell lymphoma stage IV [Unknown]
  - Cytokine release syndrome [Recovered/Resolved]
  - Therapy non-responder [Unknown]
